FAERS Safety Report 22376414 (Version 2)
Quarter: 2023Q2

REPORT INFORMATION
  Report Type: Spontaneous
  Country: JP (occurrence: JP)
  Receive Date: 20230527
  Receipt Date: 20230613
  Transmission Date: 20230721
  Serious: No
  Sender: FDA-Public Use
  Company Number: JP-TEVA-2023-JP-001254J

PATIENT
  Age: 31 Year
  Sex: Male

DRUGS (1)
  1. LEVOFLOXACIN [Suspect]
     Active Substance: LEVOFLOXACIN
     Indication: Gastroenteritis
     Dosage: 1000 MILLIGRAM DAILY;
     Route: 048
     Dates: start: 20230513, end: 20230513

REACTIONS (3)
  - Dyspnoea [Recovered/Resolved]
  - Cough [Recovered/Resolved]
  - Drug eruption [Recovered/Resolved]

NARRATIVE: CASE EVENT DATE: 20230513
